FAERS Safety Report 25331354 (Version 1)
Quarter: 2025Q2

REPORT INFORMATION
  Report Type: Spontaneous
  Country: US (occurrence: US)
  Receive Date: 20250519
  Receipt Date: 20250519
  Transmission Date: 20250717
  Serious: Yes (Hospitalization)
  Sender: SANOFI AVENTIS
  Company Number: US-SA-2025SA142014

PATIENT
  Age: 15 Year
  Sex: Male

DRUGS (4)
  1. ELOCTATE [Suspect]
     Active Substance: EFMOROCTOCOG ALFA
     Indication: Factor VIII deficiency
     Dosage: INFUSE 5000 UNITS (4500-5500) SLOW IV PUSH EVERY 12HOURS FOR 4 DAYS, THEN INFUSE 5000 UNITS (4500-55
     Route: 042
     Dates: start: 202505
  2. ELOCTATE [Suspect]
     Active Substance: EFMOROCTOCOG ALFA
     Indication: Factor VIII deficiency
     Dosage: INFUSE 5000 UNITS (4500-5500) SLOW IV PUSH EVERY 12HOURS FOR 4 DAYS, THEN INFUSE 5000 UNITS (4500-55
     Route: 042
     Dates: start: 202505
  3. ELOCTATE [Suspect]
     Active Substance: EFMOROCTOCOG ALFA
     Dosage: INFUSE 5000 UNITS (4500-5500) SLOW IV PUSH DAILY FOR 7 DAYS AND AS NEEDED FOR BLEEDS
     Route: 042
     Dates: start: 202505
  4. ELOCTATE [Suspect]
     Active Substance: EFMOROCTOCOG ALFA
     Dosage: INFUSE 5000 UNITS (4500-5500) SLOW IV PUSH DAILY FOR 7 DAYS AND AS NEEDED FOR BLEEDS
     Route: 042
     Dates: start: 202505

REACTIONS (1)
  - Haemorrhage [Not Recovered/Not Resolved]

NARRATIVE: CASE EVENT DATE: 20250506
